FAERS Safety Report 9343837 (Version 1)
Quarter: 2013Q2

REPORT INFORMATION
  Report Type: Spontaneous
  Country: US (occurrence: US)
  Receive Date: 20130612
  Receipt Date: 20130612
  Transmission Date: 20140414
  Serious: Yes (Other)
  Sender: FDA-Public Use
  Company Number: US-ELI_LILLY_AND_COMPANY-US201306000182

PATIENT
  Age: 66 Year
  Sex: Female

DRUGS (1)
  1. CYMBALTA [Suspect]
     Indication: DIABETIC NEUROPATHY
     Dosage: 2 DF, QD

REACTIONS (8)
  - Joint injury [Unknown]
  - Skin haemorrhage [Recovering/Resolving]
  - Glaucoma [Unknown]
  - Exfoliative rash [Recovering/Resolving]
  - Fall [Unknown]
  - Incontinence [Unknown]
  - Cataract [Unknown]
  - Intraocular pressure increased [Recovering/Resolving]
